FAERS Safety Report 15250348 (Version 1)
Quarter: 2018Q3

REPORT INFORMATION
  Report Type: Spontaneous
  Country: US (occurrence: US)
  Receive Date: 20180716
  Receipt Date: 20180716
  Transmission Date: 20181010
  Serious: Yes (Other)
  Sender: FDA-Public Use
  Company Number: None

PATIENT
  Age: 77 Year
  Sex: Female
  Weight: 69.75 kg

DRUGS (13)
  1. TACROLIMUS. [Concomitant]
     Active Substance: TACROLIMUS
  2. PANTOPRAZOLE [Concomitant]
     Active Substance: PANTOPRAZOLE
  3. GLIPIZIDE. [Concomitant]
     Active Substance: GLIPIZIDE
  4. RANITIDINE. [Concomitant]
     Active Substance: RANITIDINE
  5. ACTONEL [Concomitant]
     Active Substance: RISEDRONATE SODIUM
  6. VALSARTAN. [Suspect]
     Active Substance: VALSARTAN
     Indication: HYPERTENSION
     Route: 048
     Dates: start: 20171007, end: 20180715
  7. MYCOPHENOLATE [Concomitant]
     Active Substance: MYCOPHENOLIC ACID
  8. AMLODIPINE [Concomitant]
     Active Substance: AMLODIPINE BESYLATE
  9. PREDISONE [Concomitant]
     Active Substance: PREDNISONE
  10. ATENOLOL. [Concomitant]
     Active Substance: ATENOLOL
  11. SIMVASTATIN. [Concomitant]
     Active Substance: SIMVASTATIN
  12. CLONIDINE. [Concomitant]
     Active Substance: CLONIDINE
  13. LUMIGAN [Concomitant]
     Active Substance: BIMATOPROST

REACTIONS (2)
  - Headache [None]
  - Nausea [None]

NARRATIVE: CASE EVENT DATE: 20180401
